FAERS Safety Report 8956931 (Version 1)
Quarter: 2012Q4

REPORT INFORMATION
  Report Type: Spontaneous
  Country: US (occurrence: None)
  Receive Date: 20121205
  Receipt Date: 20121205
  Transmission Date: 20130627
  Serious: Yes (Other)
  Sender: FDA-Public Use
  Company Number: None

PATIENT
  Sex: Female
  Weight: 83.92 kg

DRUGS (1)
  1. HYDROXYCHLOROQUINE [Suspect]
     Indication: UNDIFFERENTIATED CONNECTIVE TISSUE DISEASE
     Dates: start: 20121201, end: 20121202

REACTIONS (10)
  - Diarrhoea [None]
  - Abdominal pain [None]
  - Pain [None]
  - Abdominal distension [None]
  - Eyelid oedema [None]
  - Dizziness [None]
  - Paraesthesia [None]
  - Hypoaesthesia [None]
  - Oedema peripheral [None]
  - Joint swelling [None]
